FAERS Safety Report 4359903-9 (Version None)
Quarter: 2004Q2

REPORT INFORMATION
  Report Type: 
  Country: None (occurrence: None)
  Receive Date: 20040518
  Receipt Date: 20040406
  Transmission Date: 20050107
  Serious: Yes (Hospitalization)
  Sender: FDA-Public Use
  Company Number: US-BRISTOL-MYERS SQUIBB COMPANY-12552907

PATIENT
  Age: 20 Year
  Sex: Female
  Weight: 61 kg

DRUGS (2)
  1. EXCEDRIN (MIGRAINE) [Suspect]
     Indication: MIGRAINE
  2. IMITREX [Suspect]

REACTIONS (5)
  - COMPLICATIONS OF MATERNAL EXPOSURE TO THERAPEUTIC DRUGS [None]
  - DRUG EXPOSURE DURING PREGNANCY [None]
  - HYPERTENSION [None]
  - NORMAL NEWBORN [None]
  - ULTRASOUND SCAN ABNORMAL [None]
